FAERS Safety Report 5397606-2 (Version None)
Quarter: 2007Q3

REPORT INFORMATION
  Report Type: 
  Country: None (occurrence: None)
  Receive Date: 20070726
  Receipt Date: 20070717
  Transmission Date: 20080115
  Serious: Yes (Other)
  Sender: FDA-Public Use
  Company Number: US-ROCHE-507783

PATIENT
  Age: 27 Year
  Sex: Female

DRUGS (2)
  1. ACCUTANE [Suspect]
     Indication: DRUG USE FOR UNKNOWN INDICATION
     Route: 048
     Dates: start: 20070604, end: 20070704
  2. ORTHO TRI-CYCLEN [Concomitant]
     Route: 048

REACTIONS (2)
  - ABORTION INDUCED [None]
  - NO ADVERSE REACTION [None]
